FAERS Safety Report 14484037 (Version 3)
Quarter: 2018Q3

REPORT INFORMATION
  Report Type: Spontaneous
  Country: FR (occurrence: FR)
  Receive Date: 20180205
  Receipt Date: 20180731
  Transmission Date: 20181010
  Serious: Yes (Other)
  Sender: FDA-Public Use
  Company Number: FR-MERCK KGAA-2041359

PATIENT
  Age: 66 Year
  Sex: Female

DRUGS (1)
  1. NOVOTHYROX [Suspect]
     Active Substance: LEVOTHYROXINE SODIUM
     Indication: POST PROCEDURAL HYPOTHYROIDISM
     Dates: start: 20170702

REACTIONS (51)
  - Alopecia [Unknown]
  - Tinnitus [Unknown]
  - Anxiety [Unknown]
  - Oedema peripheral [Unknown]
  - Gait disturbance [Unknown]
  - Ventricular extrasystoles [Unknown]
  - Vomiting [Unknown]
  - Insomnia [Unknown]
  - Affective disorder [Unknown]
  - Gastrointestinal motility disorder [Unknown]
  - Abnormal weight gain [Unknown]
  - Memory impairment [Unknown]
  - Gait inability [Unknown]
  - Tachycardia [Unknown]
  - Mental impairment [Unknown]
  - Myalgia [Unknown]
  - Visual impairment [Unknown]
  - Muscle swelling [Unknown]
  - Depression [Unknown]
  - Gastrointestinal pain [Unknown]
  - Decreased interest [Unknown]
  - Abdominal distension [Unknown]
  - Nausea [Unknown]
  - Cough [Unknown]
  - Arthralgia [Unknown]
  - Renal pain [Unknown]
  - Daydreaming [Unknown]
  - Blood thyroid stimulating hormone decreased [Unknown]
  - Vertigo [Unknown]
  - Balance disorder [Unknown]
  - Pain in extremity [Unknown]
  - Emotional disorder [Unknown]
  - General physical health deterioration [Unknown]
  - Amnesia [Unknown]
  - Sleep disorder [Unknown]
  - Hot flush [Unknown]
  - Hyperhidrosis [Unknown]
  - Dyspnoea [Unknown]
  - Joint swelling [Unknown]
  - Dizziness [Unknown]
  - Asthenia [Unknown]
  - Mood swings [Recovering/Resolving]
  - Hypokinesia [Unknown]
  - Abdominal pain [Unknown]
  - Negative thoughts [Unknown]
  - Fatigue [Unknown]
  - Malaise [Unknown]
  - Presyncope [Unknown]
  - Irritable bowel syndrome [Unknown]
  - Muscle spasms [Unknown]
  - Headache [Unknown]

NARRATIVE: CASE EVENT DATE: 2017
